FAERS Safety Report 22630057 (Version 6)
Quarter: 2025Q1

REPORT INFORMATION
  Report Type: Spontaneous
  Country: JP (occurrence: JP)
  Receive Date: 20230622
  Receipt Date: 20250227
  Transmission Date: 20250408
  Serious: Yes (Hospitalization, Other)
  Sender: ELI LILLY AND COMPANY
  Company Number: JP-ELI_LILLY_AND_COMPANY-JP202306009174

PATIENT
  Age: 34 Year
  Sex: Female
  Weight: 48 kg

DRUGS (25)
  1. VERZENIO [Suspect]
     Active Substance: ABEMACICLIB
     Indication: Breast cancer stage IV
     Dosage: 150 MG, BID
     Route: 048
     Dates: start: 20220808, end: 2023
  2. FASLODEX [Suspect]
     Active Substance: FULVESTRANT
     Indication: Breast cancer stage IV
     Route: 058
     Dates: start: 20220808, end: 2023
  3. LEUPLIN [Suspect]
     Active Substance: LEUPROLIDE ACETATE
     Indication: Breast cancer stage IV
     Route: 058
     Dates: start: 20220808
  4. LOXOPROFEN [Suspect]
     Active Substance: LOXOPROFEN
     Indication: Pyrexia
     Route: 048
     Dates: start: 20230521
  5. PRIMPERAN [Suspect]
     Active Substance: METOCLOPRAMIDE HYDROCHLORIDE
     Indication: Nausea
     Dosage: 5 MG, TID
     Route: 048
     Dates: start: 20210614, end: 20230611
  6. PREDONINE [Suspect]
     Active Substance: PREDNISOLONE
     Indication: Nephropathy toxic
     Route: 048
     Dates: start: 20230602
  7. PREDONINE [Suspect]
     Active Substance: PREDNISOLONE
     Route: 048
     Dates: end: 20230706
  8. SOLU-CORTEF [Suspect]
     Active Substance: HYDROCORTISONE SODIUM SUCCINATE
     Indication: Nephropathy toxic
     Route: 042
     Dates: start: 20230601
  9. SOLU-CORTEF [Suspect]
     Active Substance: HYDROCORTISONE SODIUM SUCCINATE
     Indication: Kidney enlargement
     Route: 042
     Dates: end: 20230602
  10. FUROSEMIDE [Suspect]
     Active Substance: FUROSEMIDE
     Indication: Oedema peripheral
     Dosage: 20 MG, DAILY
     Route: 048
     Dates: start: 20230603, end: 20230605
  11. FUROSEMIDE [Suspect]
     Active Substance: FUROSEMIDE
     Indication: Oedema peripheral
     Route: 042
     Dates: start: 20230530, end: 20230602
  12. FAMOTIDINE [Suspect]
     Active Substance: FAMOTIDINE
     Indication: Prophylaxis against gastrointestinal ulcer
     Dosage: 20 MG, DAILY
     Route: 048
     Dates: start: 20230603, end: 20230821
  13. FAMOTIDINE [Suspect]
     Active Substance: FAMOTIDINE
     Indication: Prophylaxis against gastrointestinal ulcer
     Route: 042
     Dates: start: 20230601, end: 20230602
  14. POTASSIUM ASPARTATE [Suspect]
     Active Substance: POTASSIUM ASPARTATE
     Indication: Hypokalaemia
     Dosage: 300 MG, TID
     Route: 048
     Dates: start: 20230601, end: 20230609
  15. SPIRONOLACTONE [Suspect]
     Active Substance: SPIRONOLACTONE
     Indication: Oedema peripheral
     Dosage: 25 MG, DAILY
     Route: 048
     Dates: start: 20230606, end: 20230609
  16. CORTRIL [Suspect]
     Active Substance: HYDROCORTISONE
     Indication: Secondary adrenocortical insufficiency
     Dosage: 10 MG, DAILY
     Route: 048
     Dates: start: 20230711, end: 20230822
  17. SULFAMETHOXAZOLE\TRIMETHOPRIM [Suspect]
     Active Substance: SULFAMETHOXAZOLE\TRIMETHOPRIM
     Indication: Antifungal prophylaxis
     Dosage: 2 DOSAGE FORM, BID
     Route: 048
     Dates: start: 20230704, end: 20230717
  18. AMLODIPINE BESYLATE [Suspect]
     Active Substance: AMLODIPINE BESYLATE
     Indication: Hypertension
     Dosage: 2.5 MG, DAILY
     Route: 048
     Dates: start: 20230703, end: 20230717
  19. OLMESARTAN MEDOXOMIL [Suspect]
     Active Substance: OLMESARTAN MEDOXOMIL
     Indication: Hypertension
     Dosage: 20 MG, DAILY
     Route: 048
     Dates: start: 20230704, end: 20230717
  20. ISOTONIC SODIUM CHLORIDE SOLUTION [Suspect]
     Active Substance: SODIUM CHLORIDE
     Indication: Nephropathy toxic
     Route: 042
     Dates: start: 20230529, end: 20230605
  21. ISOTONIC SODIUM CHLORIDE SOLUTION [Suspect]
     Active Substance: SODIUM CHLORIDE
     Indication: Dehydration
  22. LYNPARZA [Suspect]
     Active Substance: OLAPARIB
     Indication: Breast cancer stage IV
     Dosage: 300 MG, BID
     Route: 048
     Dates: start: 20210614, end: 20220807
  23. LAC B [BIFIDOBACTERIUM BIFIDUM] [Concomitant]
     Indication: Diarrhoea
     Dosage: 1 G, TID
     Route: 048
     Dates: start: 20210629, end: 20230219
  24. FEXOFENADINE HYDROCHLORIDE [Concomitant]
     Active Substance: FEXOFENADINE HYDROCHLORIDE
     Indication: Dermatitis
     Dosage: 60 MG, BID
     Route: 048
     Dates: start: 20210810, end: 20220807
  25. BUTYLSCOPOLAMINE BROMIDE [Concomitant]
     Active Substance: BUTYLSCOPOLAMINE BROMIDE
     Indication: Abdominal pain
     Route: 048
     Dates: start: 20220808, end: 20220808

REACTIONS (67)
  - Nephropathy toxic [Recovering/Resolving]
  - Akathisia [Recovered/Resolved]
  - Hypoproteinaemia [Recovered/Resolved]
  - Hypoalbuminaemia [Recovered/Resolved]
  - Azotaemia [Recovered/Resolved]
  - Hyponatraemia [Recovered/Resolved]
  - Hypochloraemia [Recovered/Resolved]
  - C-reactive protein increased [Recovered/Resolved]
  - White blood cell count increased [Recovered/Resolved]
  - Neutrophil count increased [Recovered/Resolved]
  - Hyperuricaemia [Recovered/Resolved]
  - Proteinuria [Recovered/Resolved]
  - Renal tubular disorder [Recovered/Resolved]
  - Amylase decreased [Recovered/Resolved]
  - Blood thyroid stimulating hormone decreased [Recovered/Resolved]
  - Cortisol increased [Recovered/Resolved]
  - Coagulopathy [Recovered/Resolved]
  - Hypoxia [Recovered/Resolved]
  - Hypogammaglobulinaemia [Recovered/Resolved]
  - Blood creatine phosphokinase decreased [Recovered/Resolved]
  - Hepatomegaly [Recovered/Resolved]
  - Kidney enlargement [Recovered/Resolved]
  - Bacteriuria [Recovered/Resolved]
  - Blood cholinesterase decreased [Recovered/Resolved]
  - Hypoglycaemia [Recovered/Resolved]
  - Ketonuria [Recovered/Resolved]
  - Hyperglycaemia [Recovered/Resolved]
  - Procalcitonin increased [Recovered/Resolved]
  - Beta 2 microglobulin urine [Recovered/Resolved]
  - Secondary adrenocortical insufficiency [Recovered/Resolved]
  - Pulmonary toxicity [Recovered/Resolved]
  - Renal impairment [Recovering/Resolving]
  - Haematuria [Recovered/Resolved]
  - Hepatic function abnormal [Recovering/Resolving]
  - Malaise [Recovered/Resolved]
  - Hypokalaemia [Recovered/Resolved]
  - Hypertension [Recovered/Resolved]
  - Pyrexia [Recovered/Resolved]
  - Blood creatinine increased [Recovering/Resolving]
  - Renal abscess [Recovering/Resolving]
  - Nausea [Unknown]
  - Vomiting [Recovered/Resolved]
  - Decreased appetite [Recovered/Resolved]
  - Platelet count decreased [Recovered/Resolved]
  - Escherichia urinary tract infection [Recovered/Resolved]
  - Diarrhoea [Recovering/Resolving]
  - Hyperchromic anaemia [Not Recovered/Not Resolved]
  - Blood triglycerides increased [Recovering/Resolving]
  - Basophil count increased [Recovered/Resolved]
  - Blood corticotrophin abnormal [Recovered/Resolved]
  - Hypomagnesaemia [Recovered/Resolved]
  - Hypernatraemia [Recovered/Resolved]
  - Hypophosphataemia [Recovered/Resolved]
  - Zinc deficiency [Recovered/Resolved]
  - Hyperamylasaemia [Recovered/Resolved]
  - Glycosuria [Recovered/Resolved]
  - Sinus tachycardia [Recovered/Resolved]
  - Thrombocytosis [Recovering/Resolving]
  - Surfactant protein increased [Not Recovered/Not Resolved]
  - Renin increased [Recovered/Resolved]
  - Abdominal distension [Unknown]
  - Dehydration [Unknown]
  - Oedema peripheral [Recovered/Resolved]
  - Stomatitis [Recovered/Resolved]
  - Neutrophil count decreased [Recovered/Resolved]
  - White blood cell count decreased [Recovered/Resolved]
  - Lymphocyte count decreased [Recovered/Resolved]

NARRATIVE: CASE EVENT DATE: 20220808
